FAERS Safety Report 7217250-1 (Version None)
Quarter: 2011Q1

REPORT INFORMATION
  Report Type: 
  Country: None (occurrence: None)
  Receive Date: 20110110
  Receipt Date: 20101230
  Transmission Date: 20110831
  Serious: Yes (Other)
  Sender: FDA-Public Use
  Company Number: US-RB-018164-11

PATIENT
  Age: 40 Year
  Sex: Male

DRUGS (1)
  1. MUCINEX DM [Suspect]
     Dosage: PATIENT STARTED TAKING ON ??-DEC-2010 TAKING 1 TABLET TWICE DAILY. HE TOOK FOUR TABLETS IN TOTAL.
     Route: 048

REACTIONS (2)
  - HYPERTENSION [None]
  - MIGRAINE [None]
